FAERS Safety Report 7880407-0 (Version None)
Quarter: 2011Q4

REPORT INFORMATION
  Report Type: 
  Country: None (occurrence: None)
  Receive Date: 20111101
  Receipt Date: 20111017
  Transmission Date: 20120403
  Serious: Yes (Other)
  Sender: FDA-Public Use
  Company Number: PHHY2011JP88326

PATIENT
  Age: 31 Year
  Sex: Female

DRUGS (5)
  1. CYCLOPHOSPHAMIDE [Concomitant]
     Dosage: 120 MG/KG, UNK
  2. PREDNISOLONE [Concomitant]
     Dosage: 1 MG/KG, DOSE TAPERED, UNK
  3. CYCLOSPORINE [Suspect]
     Indication: MYCOSIS FUNGOIDES
  4. METHOTREXATE [Concomitant]
     Dosage: UNK UKN, UNK
  5. IRRADIATION [Concomitant]
     Dosage: 12 GY, UNK

REACTIONS (5)
  - IMMUNOSUPPRESSION [None]
  - DERMATITIS EXFOLIATIVE [None]
  - BLOOD COUNT ABNORMAL [None]
  - ACUTE GRAFT VERSUS HOST DISEASE [None]
  - PYREXIA [None]
